FAERS Safety Report 18329023 (Version 2)
Quarter: 2020Q4

REPORT INFORMATION
  Report Type: Other
  Country: US (occurrence: US)
  Receive Date: 20200930
  Receipt Date: 20201026
  Transmission Date: 20210113
  Serious: Yes (Hospitalization)
  Sender: FDA-Public Use
  Company Number: US-ROCHE-2687046

PATIENT
  Age: 82 Year
  Sex: Male
  Weight: 81.72 kg

DRUGS (7)
  1. ESBRIET [Suspect]
     Active Substance: PIRFENIDONE
     Dosage: DAY 15 AND THEREAFTER TAKE 3 CAPSULE 3 TIMES DAILY
     Route: 048
     Dates: start: 20200312
  2. ESBRIET [Suspect]
     Active Substance: PIRFENIDONE
     Indication: PULMONARY FIBROSIS
     Dosage: DAYS 1-7 1 TABLET BY MOUTH 3 TIMES/DAY WITH MEALS
     Route: 048
  3. ESBRIET [Suspect]
     Active Substance: PIRFENIDONE
     Dosage: DAYS 8-14 2 TABLETS BY MOUTH 3 TIMES/DAY WITH MEALS
     Route: 048
  4. ESBRIET [Suspect]
     Active Substance: PIRFENIDONE
     Dosage: DAYS 15+ 3 TABLETS BY MOUTH 3 TIMES/DAY WITH MEALS
     Route: 048
  5. ESBRIET [Suspect]
     Active Substance: PIRFENIDONE
     Dosage: DAY 1 TO 7 TAKE 1 CAPSULE 3 TIMES DAILY
     Route: 048
     Dates: start: 20200312
  6. ESBRIET [Suspect]
     Active Substance: PIRFENIDONE
     Dosage: DAY 8 TO 14 TAKE 2 CAPSULE 3 TIMES DAILY
     Route: 048
     Dates: start: 20200312
  7. ESBRIET [Suspect]
     Active Substance: PIRFENIDONE
     Indication: PULMONARY FIBROSIS
     Dosage: TAKE 3 CAPSULE(S) BY MOUTH 3 TIMES A DAY WITH FOOD
     Route: 048

REACTIONS (1)
  - Pneumonia [Recovered/Resolved with Sequelae]

NARRATIVE: CASE EVENT DATE: 20200806
